FAERS Safety Report 8956082 (Version 1)
Quarter: 2012Q4

REPORT INFORMATION
  Report Type: 
  Country: US (occurrence: US)
  Receive Date: 20121210
  Receipt Date: 20121210
  Transmission Date: 20130627
  Serious: No
  Sender: FDA-Public Use
  Company Number: US-PFIZER INC-2012310109

PATIENT
  Sex: Male

DRUGS (4)
  1. LYRICA [Suspect]
     Indication: NERVE PAIN
     Dosage: 75 mg, 1x/day
     Dates: start: 20121128, end: 2012
  2. LYRICA [Suspect]
     Dosage: 75 mg, 2x/day
     Dates: start: 2012
  3. NEURONTIN [Suspect]
     Indication: NERVE PAIN
     Dosage: UNK, 4x/day
     Dates: end: 201211
  4. NEURONTIN [Suspect]
     Dosage: UNK, 3x/day
     Dates: start: 201211

REACTIONS (2)
  - Drug ineffective [Unknown]
  - Faeces discoloured [Not Recovered/Not Resolved]
